FAERS Safety Report 6690898-9 (Version None)
Quarter: 2010Q2

REPORT INFORMATION
  Report Type: 
  Country: None (occurrence: None)
  Receive Date: 20100421
  Receipt Date: 20100408
  Transmission Date: 20101027
  Serious: Yes (Other)
  Sender: FDA-Public Use
  Company Number: US-BAUSCH-2010BL001936

PATIENT
  Age: 86 Year
  Sex: Female

DRUGS (9)
  1. DICLOFENAC SODIUM [Suspect]
     Indication: PREOPERATIVE CARE
     Route: 047
     Dates: start: 20100301, end: 20100315
  2. DICLOFENAC SODIUM [Suspect]
     Indication: CATARACT OPERATION
     Route: 047
     Dates: start: 20100301, end: 20100315
  3. BESIVANCE [Suspect]
     Indication: ANTIBIOTIC PROPHYLAXIS
     Route: 047
     Dates: start: 20100301, end: 20100314
  4. BESIVANCE [Suspect]
     Route: 047
     Dates: start: 20100301, end: 20100314
  5. BESIVANCE [Suspect]
     Indication: OFF LABEL USE
     Route: 047
     Dates: start: 20100301, end: 20100314
  6. PRED FORTE [Suspect]
     Indication: CATARACT OPERATION
     Route: 047
     Dates: start: 20100304, end: 20100311
  7. PRED FORTE [Suspect]
     Route: 047
     Dates: start: 20100312, end: 20100325
  8. PRED FORTE [Suspect]
     Route: 047
     Dates: start: 20100326, end: 20100401
  9. BLOOD AND RELATED PRODUCTS [Concomitant]
     Indication: ANAEMIA

REACTIONS (6)
  - CORNEAL ABRASION [None]
  - CORNEAL EPITHELIUM DEFECT [None]
  - CORNEAL OEDEMA [None]
  - INCORRECT DRUG ADMINISTRATION DURATION [None]
  - PUNCTATE KERATITIS [None]
  - VISUAL ACUITY REDUCED [None]
